FAERS Safety Report 14239499 (Version 2)
Quarter: 2017Q4

REPORT INFORMATION
  Report Type: Report from Study
  Country: CA (occurrence: CA)
  Receive Date: 20171130
  Receipt Date: 20171214
  Transmission Date: 20180321
  Serious: Yes (Other)
  Sender: FDA-Public Use
  Company Number: CA-GLAXOSMITHKLINE-CA2017GSK158360

PATIENT
  Sex: Female

DRUGS (3)
  1. MEPOLIZUMAB [Suspect]
     Active Substance: MEPOLIZUMAB
     Indication: ASTHMA
     Dosage: 100 MG, Z
     Route: 042
     Dates: start: 201708
  2. MEPOLIZUMAB [Suspect]
     Active Substance: MEPOLIZUMAB
     Dosage: 100 MG, Z
     Route: 042
  3. SYMBICORT [Suspect]
     Active Substance: BUDESONIDE\FORMOTEROL FUMARATE DIHYDRATE
     Indication: ASTHMA
     Dosage: UNK

REACTIONS (13)
  - Rhinorrhoea [Unknown]
  - Chest discomfort [Recovered/Resolved]
  - Productive cough [Unknown]
  - Peak expiratory flow rate decreased [Recovered/Resolved]
  - Condition aggravated [Unknown]
  - Peak expiratory flow rate abnormal [Unknown]
  - Ill-defined disorder [Recovered/Resolved]
  - Eyelid margin crusting [Recovered/Resolved]
  - Rhinorrhoea [Recovered/Resolved]
  - Reversible airways obstruction [Unknown]
  - Nasopharyngitis [Unknown]
  - Pain [Recovered/Resolved]
  - Cough [Unknown]
